FAERS Safety Report 13885584 (Version 1)
Quarter: 2017Q3

REPORT INFORMATION
  Report Type: Spontaneous
  Country: US (occurrence: US)
  Receive Date: 20170821
  Receipt Date: 20170821
  Transmission Date: 20171127
  Serious: No
  Sender: FDA-Public Use
  Company Number: US-PFIZER INC-2017357791

PATIENT
  Sex: Female

DRUGS (1)
  1. BUMETANIDE. [Suspect]
     Active Substance: BUMETANIDE
     Dosage: 1 TO 2 TABLETS, DAILY

REACTIONS (6)
  - Peripheral swelling [Unknown]
  - Sleep disorder [Unknown]
  - Glomerular filtration rate decreased [Unknown]
  - Monocyte count increased [Unknown]
  - Rheumatic disorder [Unknown]
  - Blood pressure increased [Unknown]
